FAERS Safety Report 4591386-6 (Version None)
Quarter: 2005Q1

REPORT INFORMATION
  Report Type: 
  Country: None (occurrence: None)
  Receive Date: 20050225
  Receipt Date: 20050216
  Transmission Date: 20050727
  Serious: Yes (Other)
  Sender: FDA-Public Use
  Company Number: PHEH2005US02166

PATIENT
  Age: 65 Year
  Sex: Female

DRUGS (8)
  1. ZOMETA [Suspect]
     Indication: MULTIPLE MYELOMA
     Dosage: 4 MG EVERY 3 MONTHS
     Dates: start: 20020101
  2. CARBOPLATIN [Concomitant]
  3. EPOETIN ALFA [Concomitant]
  4. ESTROGENS CONJUGATED [Concomitant]
  5. ATIVAN [Concomitant]
  6. WARFARIN [Concomitant]
  7. RAMIPRIL [Concomitant]
  8. ACIPHEX [Concomitant]

REACTIONS (4)
  - BONE DISORDER [None]
  - HEART VALVE REPLACEMENT [None]
  - STERNOTOMY [None]
  - TENDERNESS [None]
